FAERS Safety Report 20844821 (Version 2)
Quarter: 2022Q3

REPORT INFORMATION
  Report Type: Spontaneous
  Country: US (occurrence: US)
  Receive Date: 20220518
  Receipt Date: 20220902
  Transmission Date: 20221027
  Serious: Yes (Hospitalization, Other)
  Sender: FDA-Public Use
  Company Number: US-ELI_LILLY_AND_COMPANY-US202205003974

PATIENT
  Age: 48 Year
  Sex: Female
  Weight: 64.41 kg

DRUGS (4)
  1. TADALAFIL [Suspect]
     Active Substance: TADALAFIL
     Indication: Pulmonary arterial hypertension
     Dosage: UNK UNK, UNKNOWN
     Route: 065
  2. REMODULIN [Suspect]
     Active Substance: TREPROSTINIL
     Indication: Pulmonary arterial hypertension
     Dosage: 54 NG/KG/MIN, DAILY
     Route: 058
     Dates: start: 20220316
  3. REMODULIN [Suspect]
     Active Substance: TREPROSTINIL
     Dosage: 62 NG/KG/MIN, DAILY
     Route: 058
  4. AMBRISENTAN [Concomitant]
     Active Substance: AMBRISENTAN
     Indication: Product used for unknown indication

REACTIONS (5)
  - Renal failure [Unknown]
  - Weight decreased [Unknown]
  - Hypotension [Unknown]
  - Productive cough [Unknown]
  - Nausea [Unknown]

NARRATIVE: CASE EVENT DATE: 20220401
